FAERS Safety Report 8902020 (Version 3)
Quarter: 2014Q2

REPORT INFORMATION
  Report Type: Spontaneous
  Country: US (occurrence: US)
  Receive Date: 20121112
  Receipt Date: 20140414
  Transmission Date: 20141212
  Serious: Yes (Hospitalization)
  Sender: FDA-Public Use
  Company Number: US-BAYER-2012-115967

PATIENT
  Age: 31 Year
  Sex: Female
  Weight: 115.65 kg

DRUGS (8)
  1. YAZ [Suspect]
     Dosage: UNK
     Dates: start: 20070101, end: 200703
  2. IBUPROFEN [Concomitant]
  3. ORAL CONTRACEPTIVE NOS [Concomitant]
     Dosage: UNK
     Dates: start: 199708
  4. PREVACID [Concomitant]
     Dosage: PRN (AS NEEDED)
  5. VITAMIN C [Concomitant]
     Dosage: 500 MG,DAILY
     Route: 048
  6. NORCO [Concomitant]
     Dosage: 7.5-325 MG FOUR TIMES DAILY
     Route: 048
     Dates: start: 20090716, end: 20110505
  7. XANAX [Concomitant]
     Indication: ANXIETY
     Dosage: 1 MG AS NEEDED, 0.5 MG TAKE 1 EVERY NIGHT
     Route: 048
     Dates: start: 20110201, end: 20110808
  8. HYDROCODONE/ACETAMINOPHEN [Concomitant]
     Dosage: 5-500 MG TAKE 1 TWICE DAILY
     Route: 048
     Dates: start: 20091112, end: 20111121

REACTIONS (9)
  - Cholecystectomy [None]
  - Cholecystitis chronic [None]
  - Injury [None]
  - Pain [None]
  - General physical health deterioration [None]
  - Anxiety [None]
  - Emotional distress [None]
  - Anhedonia [None]
  - Pain [None]
